FAERS Safety Report 10157350 (Version 2)
Quarter: 2014Q2

REPORT INFORMATION
  Report Type: Report from Study
  Country: AU (occurrence: AU)
  Receive Date: 20140507
  Receipt Date: 20140507
  Transmission Date: 20141212
  Serious: Yes (Other)
  Sender: FDA-Public Use
  Company Number: AU-ASTRAZENECA-2014SE05115

PATIENT
  Age: 689 Month
  Sex: Male

DRUGS (3)
  1. ZOLADEX [Suspect]
     Dosage: 3 MONTHLY
     Route: 058
     Dates: start: 20140101
  2. CALCIUM [Suspect]
     Route: 065
     Dates: start: 201401
  3. VITAMIN D [Suspect]
     Route: 065
     Dates: start: 201401

REACTIONS (8)
  - Disease progression [Unknown]
  - Pain in extremity [Not Recovered/Not Resolved]
  - Gastrointestinal sounds abnormal [Not Recovered/Not Resolved]
  - Frequent bowel movements [Not Recovered/Not Resolved]
  - Pallor [Not Recovered/Not Resolved]
  - Scleral discolouration [Not Recovered/Not Resolved]
  - Malaise [Unknown]
  - Blood pressure increased [Unknown]
